FAERS Safety Report 5982957-0 (Version None)
Quarter: 2008Q4

REPORT INFORMATION
  Report Type: 
  Country: None (occurrence: None)
  Receive Date: 20081205
  Receipt Date: 20081205
  Transmission Date: 20090506
  Serious: Yes (Disabling, Other)
  Sender: FDA-Public Use
  Company Number: None

PATIENT
  Sex: Male
  Weight: 65.7716 kg

DRUGS (2)
  1. PROVENTIL-HFA [Suspect]
     Indication: ASTHMA
     Dosage: 2 PUFFS IN A.M., TWO IN P.M. ENDOTRACHEA
     Route: 007
     Dates: start: 20081103, end: 20081202
  2. AEROBID [Suspect]
     Indication: INCREASED UPPER AIRWAY SECRETION
     Dosage: 2 PUFFS IN A.M., TWO IN P.M. ENDOTRACHEAL
     Route: 007
     Dates: start: 20080919, end: 20081202

REACTIONS (3)
  - DRUG EFFECT DECREASED [None]
  - PRODUCT QUALITY ISSUE [None]
  - STRESS [None]
